FAERS Safety Report 5116371-7 (Version None)
Quarter: 2006Q3

REPORT INFORMATION
  Report Type: 
  Country: None (occurrence: None)
  Receive Date: 20060928
  Receipt Date: 20060920
  Transmission Date: 20061208
  Serious: Yes (Other)
  Sender: FDA-Public Use
  Company Number: US-KINGPHARMUSA00001-K200601205

PATIENT
  Age: 63 Year
  Sex: Female

DRUGS (4)
  1. ALTACE [Suspect]
     Indication: HYPERTENSION
     Dates: start: 20060707, end: 20060728
  2. AMLODIPINE [Concomitant]
     Indication: HYPERTENSION
     Dosage: 5 MG, UNK
     Route: 048
  3. CALCIUM CARBONATE [Concomitant]
     Indication: OSTEOPOROSIS
  4. VITAMIN D [Concomitant]
     Indication: OSTEOPOROSIS

REACTIONS (3)
  - ALOPECIA [None]
  - RASH [None]
  - SOMNOLENCE [None]
